FAERS Safety Report 20038701 (Version 1)
Quarter: 2021Q4

REPORT INFORMATION
  Report Type: Spontaneous
  Country: CN (occurrence: CN)
  Receive Date: 20211105
  Receipt Date: 20211105
  Transmission Date: 20220303
  Serious: Yes (Life-Threatening)
  Sender: FDA-Public Use
  Company Number: CN-BoehringerIngelheim-2021-BI-136120

PATIENT
  Age: 63 Year
  Sex: Male
  Weight: 80 kg

DRUGS (2)
  1. ATROVENT [Suspect]
     Active Substance: IPRATROPIUM BROMIDE
     Indication: Dyspnoea
     Route: 055
     Dates: start: 20211022, end: 20211023
  2. ATROVENT [Suspect]
     Active Substance: IPRATROPIUM BROMIDE
     Indication: Productive cough

REACTIONS (6)
  - Dyspnoea [Recovering/Resolving]
  - Hyperhidrosis [Recovering/Resolving]
  - Respiratory rate increased [Recovering/Resolving]
  - Heart rate increased [Recovering/Resolving]
  - Cyanosis [Recovering/Resolving]
  - Oxygen saturation decreased [Recovering/Resolving]

NARRATIVE: CASE EVENT DATE: 20211023
